FAERS Safety Report 10995580 (Version 2)
Quarter: 2015Q2

REPORT INFORMATION
  Report Type: Spontaneous
  Country: US (occurrence: US)
  Receive Date: 20150407
  Receipt Date: 20150527
  Transmission Date: 20150821
  Serious: No
  Sender: FDA-Public Use
  Company Number: US-GLAXOSMITHKLINE-US2015GSK044625

PATIENT
  Sex: Female
  Weight: 67 kg

DRUGS (13)
  1. LAMICTAL [Suspect]
     Active Substance: LAMOTRIGINE
     Dosage: 25 MG, QD
  2. WELLBUTRIN [Suspect]
     Active Substance: BUPROPION HYDROCHLORIDE
     Indication: AGITATED DEPRESSION
  3. NEURONTIN [Concomitant]
     Active Substance: GABAPENTIN
  4. LITHIUM. [Concomitant]
     Active Substance: LITHIUM
  5. LAMICTAL [Suspect]
     Active Substance: LAMOTRIGINE
     Indication: BIPOLAR I DISORDER
     Dosage: 100 MG, 1D
     Route: 048
     Dates: start: 2008
  6. SYNTHROID [Concomitant]
     Active Substance: LEVOTHYROXINE SODIUM
  7. PARNATE [Concomitant]
     Active Substance: TRANYLCYPROMINE SULFATE
  8. THORAZINE [Concomitant]
     Active Substance: CHLORPROMAZINE
  9. LAMICTAL [Suspect]
     Active Substance: LAMOTRIGINE
     Indication: AGITATED DEPRESSION
     Dosage: 50 MG, 1D
  10. WELLBUTRIN [Suspect]
     Active Substance: BUPROPION HYDROCHLORIDE
     Indication: BIPOLAR I DISORDER
     Dosage: UNK
     Route: 048
     Dates: start: 1990, end: 1990
  11. TRILEPTAL [Concomitant]
     Active Substance: OXCARBAZEPINE
  12. KLONOPIN [Concomitant]
     Active Substance: CLONAZEPAM
  13. S-ADENOSYLMETHIONINE SULFATE P-TOLUENESULFONATE [Concomitant]
     Active Substance: ADEMETIONINE SULFATE TOSILATE

REACTIONS (3)
  - Depression [Recovered/Resolved]
  - Anger [Recovered/Resolved]
  - Agitation [Recovered/Resolved]

NARRATIVE: CASE EVENT DATE: 1990
